FAERS Safety Report 7350748-4 (Version None)
Quarter: 2011Q1

REPORT INFORMATION
  Report Type: 
  Country: None (occurrence: None)
  Receive Date: 20110314
  Receipt Date: 20110307
  Transmission Date: 20110831
  Serious: Yes (Death)
  Sender: FDA-Public Use
  Company Number: US-GENENTECH-313525

PATIENT
  Sex: Male
  Weight: 92.517 kg

DRUGS (3)
  1. BENADRYL [Concomitant]
     Indication: PREMEDICATION
  2. RITUXAN [Suspect]
     Indication: HAIRY CELL LEUKAEMIA
     Dosage: 375 MG/M2, X1
     Route: 042
     Dates: start: 20110203, end: 20110203
  3. TYLENOL [Concomitant]
     Indication: PREMEDICATION

REACTIONS (3)
  - RESPIRATORY DISTRESS [None]
  - CYTOKINE RELEASE SYNDROME [None]
  - INFUSION RELATED REACTION [None]
